FAERS Safety Report 13714494 (Version 2)
Quarter: 2017Q3

REPORT INFORMATION
  Report Type: Report from Study
  Country: BR (occurrence: BR)
  Receive Date: 20170704
  Receipt Date: 20170719
  Transmission Date: 20171127
  Serious: Yes (Hospitalization)
  Sender: FDA-Public Use
  Company Number: PHHY2017BR096555

PATIENT
  Sex: Male
  Weight: 60 kg

DRUGS (2)
  1. AZORGA [Suspect]
     Active Substance: BRINZOLAMIDE\TIMOLOL MALEATE
     Indication: GLAUCOMA
     Dosage: 1 GTT, Q12H (A DROP AT 7:00 IN THE MORNING AND 19:00 AT NIGHT)
     Route: 047
  2. INSULIN [Concomitant]
     Active Substance: INSULIN NOS
     Indication: PRODUCT USED FOR UNKNOWN INDICATION
     Dosage: 3 DF, QD, FOR 3 YEARS
     Route: 065

REACTIONS (5)
  - Weight decreased [Unknown]
  - Visual impairment [Unknown]
  - Weight increased [Unknown]
  - Retinal haemorrhage [Recovering/Resolving]
  - Intraocular pressure increased [Recovering/Resolving]
